FAERS Safety Report 7532913-6 (Version None)
Quarter: 2011Q2

REPORT INFORMATION
  Report Type: 
  Country: None (occurrence: None)
  Receive Date: 20110608
  Receipt Date: 20110603
  Transmission Date: 20111010
  Serious: Yes (Other)
  Sender: FDA-Public Use
  Company Number: US-PFIZER INC-2011121171

PATIENT
  Age: 25 Year
  Sex: Male

DRUGS (1)
  1. BENEFIX [Suspect]
     Indication: HAEMOPHILIA
     Dosage: UNK

REACTIONS (5)
  - DIZZINESS [None]
  - DIPLOPIA [None]
  - FATIGUE [None]
  - ABDOMINAL DISCOMFORT [None]
  - INCORRECT DRUG ADMINISTRATION RATE [None]
